FAERS Safety Report 6394118-4 (Version None)
Quarter: 2009Q4

REPORT INFORMATION
  Report Type: 
  Country: None (occurrence: None)
  Receive Date: 20091008
  Receipt Date: 20090928
  Transmission Date: 20100525
  Serious: Yes (Other)
  Sender: FDA-Public Use
  Company Number: FR-PFIZER INC-2009274535

PATIENT
  Age: 39 Year

DRUGS (1)
  1. SALAZOPYRIN [Suspect]
     Dosage: UNK
     Route: 048
     Dates: start: 20090801, end: 20090801

REACTIONS (1)
  - DRUG RASH WITH EOSINOPHILIA AND SYSTEMIC SYMPTOMS [None]
